FAERS Safety Report 6579078-5 (Version None)
Quarter: 2010Q1

REPORT INFORMATION
  Report Type: 
  Country: None (occurrence: None)
  Receive Date: 20100212
  Receipt Date: 20100203
  Transmission Date: 20100710
  Serious: Yes (Other)
  Sender: FDA-Public Use
  Company Number: CA-ABBOTT-10P-028-0624514-00

PATIENT
  Sex: Male
  Weight: 98.064 kg

DRUGS (24)
  1. KALETRA [Suspect]
     Indication: HIV INFECTION
     Dosage: TOTAL DAILY DOSE:   200/50 MG X 2 TABLETS; 800/200MG TOTAL DAILY
     Route: 048
     Dates: start: 20080821
  2. OXYCONTIN [Suspect]
     Indication: PAIN
     Route: 048
     Dates: end: 20100128
  3. OXYCONTIN [Suspect]
     Dates: start: 20100129
  4. OXYCONTIN [Suspect]
  5. TRUVADA [Concomitant]
     Indication: HIV INFECTION
     Route: 048
     Dates: start: 20080821
  6. CRESTOR [Concomitant]
     Indication: DRUG USE FOR UNKNOWN INDICATION
     Dosage: IN THE AM
     Route: 048
  7. VASOTEC [Concomitant]
     Indication: HYPERTENSION
  8. RAN-RABEPRAZOLE [Concomitant]
     Indication: GASTROOESOPHAGEAL REFLUX DISEASE
     Route: 048
  9. RHOVANE [Concomitant]
     Indication: DRUG USE FOR UNKNOWN INDICATION
     Route: 048
  10. LYRICA [Concomitant]
     Indication: DRUG USE FOR UNKNOWN INDICATION
     Route: 048
  11. GABAPENTIN [Concomitant]
     Indication: DRUG USE FOR UNKNOWN INDICATION
     Dosage: 300 MG X 4 TABLETS
     Route: 048
  12. TAMSULOSIN RATIOPHARM [Concomitant]
     Indication: DRUG USE FOR UNKNOWN INDICATION
     Route: 048
  13. XYLOCAINE [Concomitant]
     Indication: PAIN IN EXTREMITY
     Dosage: GEL
     Route: 061
  14. NEURAGEN [Concomitant]
     Indication: PAIN IN EXTREMITY
     Route: 061
  15. LACTULOSE [Concomitant]
     Indication: DRUG USE FOR UNKNOWN INDICATION
     Route: 048
  16. PERCOCET [Concomitant]
     Indication: PAIN
     Route: 048
  17. VALTREX [Concomitant]
     Indication: DRUG USE FOR UNKNOWN INDICATION
     Dosage: 1 GRAM DAILY AS NEEDED
     Route: 048
  18. PROZAC [Concomitant]
     Indication: DRUG USE FOR UNKNOWN INDICATION
     Dosage: 20 MG X 2 TABLETS
     Route: 048
  19. SENOKOT [Concomitant]
     Indication: DRUG USE FOR UNKNOWN INDICATION
     Dosage: 8.6 MG X 2 TABLETS AT BEDTIME AS NEEDED
     Route: 048
  20. PARIET [Concomitant]
     Indication: DRUG USE FOR UNKNOWN INDICATION
     Route: 048
  21. COLACE [Concomitant]
     Indication: DRUG USE FOR UNKNOWN INDICATION
     Route: 048
  22. FLUCONAZOLE [Concomitant]
     Indication: DRUG USE FOR UNKNOWN INDICATION
     Route: 048
  23. GRAVOL TAB [Concomitant]
     Indication: NAUSEA
     Route: 048
  24. SODIUM PHOSPHATES [Concomitant]
     Indication: DRUG USE FOR UNKNOWN INDICATION
     Dosage: (160/60/ML), ONCE DAILY AS NEEDED
     Route: 054

REACTIONS (12)
  - ABDOMINAL PAIN [None]
  - ANXIETY [None]
  - ASTHENIA [None]
  - DIARRHOEA [None]
  - FEELING OF DESPAIR [None]
  - FLATULENCE [None]
  - FREQUENT BOWEL MOVEMENTS [None]
  - ILL-DEFINED DISORDER [None]
  - MALAISE [None]
  - MOBILITY DECREASED [None]
  - PAIN IN EXTREMITY [None]
  - SUICIDAL IDEATION [None]
